FAERS Safety Report 5986056-3 (Version None)
Quarter: 2008Q4

REPORT INFORMATION
  Report Type: 
  Country: None (occurrence: None)
  Receive Date: 20081209
  Receipt Date: 20081201
  Transmission Date: 20090506
  Serious: Yes (Hospitalization)
  Sender: FDA-Public Use
  Company Number: DE-BAYER-200831939GPV

PATIENT
  Age: 21 Year
  Sex: Male
  Weight: 60 kg

DRUGS (2)
  1. MAGNEVIST [Suspect]
     Indication: DIAGNOSTIC PROCEDURE
     Dosage: TOTAL DAILY DOSE: 15 ML
     Route: 042
     Dates: start: 20081119, end: 20081119
  2. MAGNEVIST [Suspect]
     Route: 042
     Dates: start: 20081126, end: 20081126

REACTIONS (5)
  - FATIGUE [None]
  - FEELING HOT [None]
  - INFLUENZA LIKE ILLNESS [None]
  - MALAISE [None]
  - PYREXIA [None]
